FAERS Safety Report 6780968-9 (Version None)
Quarter: 2010Q2

REPORT INFORMATION
  Report Type: 
  Country: None (occurrence: None)
  Receive Date: 20100621
  Receipt Date: 20100614
  Transmission Date: 20101027
  Serious: Yes (Death, Hospitalization, Other)
  Sender: FDA-Public Use
  Company Number: NL-ELI_LILLY_AND_COMPANY-NL201005005640

PATIENT
  Sex: Female

DRUGS (12)
  1. FORTEO [Suspect]
     Indication: OSTEOPOROSIS
     Dosage: 20 UG, DAILY (1/D)
     Route: 058
     Dates: start: 20100506
  2. RANITIDINE [Concomitant]
     Dosage: 150 MG, DAILY (1/D)
     Route: 048
  3. AMIODARONE HCL [Concomitant]
     Dosage: 200 MG, DAILY (1/D)
     Route: 048
  4. THYRAX [Concomitant]
     Dosage: 0.025 MG, DAILY (1/D)
     Route: 048
  5. PROTAGENS [Concomitant]
     Dosage: UNK UNK, 2/D
  6. ASCAL CARDIO [Concomitant]
     Dosage: 100 MG, DAILY (1/D)
     Route: 048
  7. MONO-CEDOCARD [Concomitant]
     Dosage: 25 MG, DAILY (1/D)
     Route: 048
  8. PSYLLIUM [Concomitant]
     Dosage: 3.25 G, DAILY (1/D)
     Route: 048
  9. CALCIUM CARBONATE W/COLECALCIFEROL [Concomitant]
     Dosage: UNK UNK, DAILY (1/D)
     Route: 048
  10. OXYCODONE HYDROCHLORIDE [Concomitant]
     Dosage: 10 MG, 3/D
     Route: 048
  11. AMLODIPINE [Concomitant]
     Dosage: 5 MG, DAILY (1/D)
     Route: 048
  12. MORPHINE [Concomitant]

REACTIONS (10)
  - AGITATION [None]
  - ATRIAL FIBRILLATION [None]
  - CARDIAC FAILURE [None]
  - DYSPNOEA [None]
  - GENERAL PHYSICAL HEALTH DETERIORATION [None]
  - PAIN [None]
  - PALLOR [None]
  - RESPIRATORY TRACT INFECTION [None]
  - URINARY TRACT INFECTION [None]
  - WEIGHT DECREASED [None]
